FAERS Safety Report 19138694 (Version 2)
Quarter: 2021Q2

REPORT INFORMATION
  Report Type: Report from Study
  Country: BR (occurrence: BR)
  Receive Date: 20210415
  Receipt Date: 20210423
  Transmission Date: 20210717
  Serious: Yes (Other)
  Sender: FDA-Public Use
  Company Number: NVSC2021BR082820

PATIENT
  Sex: Male
  Weight: 80 kg

DRUGS (2)
  1. TRAVATAN [Suspect]
     Active Substance: TRAVOPROST
     Indication: GLAUCOMA
     Dosage: 2 DRP, QD
     Route: 047
  2. TAMSULOSIN [Concomitant]
     Active Substance: TAMSULOSIN
     Indication: PROSTATOMEGALY
     Dosage: 1 DF, QD (1 TABLET OF 0,4MG) (ABOUT 20 YEARS AGO)
     Route: 048

REACTIONS (3)
  - Cataract [Recovered/Resolved]
  - Senile dementia [Not Recovered/Not Resolved]
  - Muscular weakness [Not Recovered/Not Resolved]
